FAERS Safety Report 13043144 (Version 3)
Quarter: 2017Q1

REPORT INFORMATION
  Report Type: Report from Study
  Country: BR (occurrence: BR)
  Receive Date: 20161219
  Receipt Date: 20170207
  Transmission Date: 20170428
  Serious: Yes (Hospitalization, Disabling, Other)
  Sender: FDA-Public Use
  Company Number: PHHY2016BR169745

PATIENT
  Age: 50 Year
  Sex: Female
  Weight: 76 kg

DRUGS (6)
  1. CALCIUM [Concomitant]
     Active Substance: CALCIUM
     Indication: PRODUCT USED FOR UNKNOWN INDICATION
     Route: 065
  2. COSENTYX [Suspect]
     Active Substance: SECUKINUMAB
     Dosage: 150 MG, QW
     Route: 058
     Dates: start: 20161214
  3. COSENTYX [Suspect]
     Active Substance: SECUKINUMAB
     Indication: ANKYLOSING SPONDYLITIS
     Dosage: 150 MG, QW
     Route: 058
     Dates: start: 20161130
  4. VITAMIN D [Concomitant]
     Active Substance: CHOLECALCIFEROL
     Indication: PRODUCT USED FOR UNKNOWN INDICATION
     Route: 065
  5. COSENTYX [Suspect]
     Active Substance: SECUKINUMAB
     Dosage: 150 MG, QW
     Route: 058
     Dates: start: 20161207
  6. CLARITIN [Concomitant]
     Active Substance: LORATADINE
     Indication: PRODUCT USED FOR UNKNOWN INDICATION
     Route: 065

REACTIONS (32)
  - Memory impairment [Not Recovered/Not Resolved]
  - Musculoskeletal pain [Recovering/Resolving]
  - Pain in extremity [Recovering/Resolving]
  - Spinal pain [Unknown]
  - Vomiting [Recovering/Resolving]
  - Chest discomfort [Recovering/Resolving]
  - Fatigue [Unknown]
  - Genital rash [Recovering/Resolving]
  - Rheumatoid arthritis [Unknown]
  - Headache [Recovering/Resolving]
  - Emotional distress [Recovering/Resolving]
  - Fibromyalgia [Unknown]
  - Abdominal discomfort [Unknown]
  - Pain [Not Recovered/Not Resolved]
  - Pyrexia [Recovering/Resolving]
  - Nasopharyngitis [Recovering/Resolving]
  - Asthenopia [Unknown]
  - Arthralgia [Unknown]
  - Paraesthesia [Recovering/Resolving]
  - Somnolence [Unknown]
  - Skin sensitisation [Unknown]
  - Fistula [Recovering/Resolving]
  - Speech disorder [Recovering/Resolving]
  - Blood pressure fluctuation [Recovering/Resolving]
  - Malaise [Unknown]
  - Asthenia [Unknown]
  - Hypoaesthesia [Unknown]
  - Immunosuppression [Unknown]
  - Anal haemorrhage [Recovering/Resolving]
  - Inflammatory pain [Recovering/Resolving]
  - Insomnia [Unknown]
  - Rash [Recovering/Resolving]

NARRATIVE: CASE EVENT DATE: 20161130
